FAERS Safety Report 10174701 (Version 1)
Quarter: 2014Q2

REPORT INFORMATION
  Report Type: Spontaneous
  Country: IN (occurrence: IN)
  Receive Date: 20140515
  Receipt Date: 20140515
  Transmission Date: 20141212
  Serious: Yes (Death, Other)
  Sender: FDA-Public Use
  Company Number: IN-009507513-1405IND006100

PATIENT
  Sex: Female

DRUGS (1)
  1. JANUVIA [Suspect]
     Dosage: STRENGTH:100 MG, (1/DAY)
     Route: 048
     Dates: start: 20130608, end: 20140507

REACTIONS (1)
  - Myocardial infarction [Fatal]
